FAERS Safety Report 5777451-6 (Version None)
Quarter: 2008Q2

REPORT INFORMATION
  Report Type: 
  Country: None (occurrence: None)
  Receive Date: 20080618
  Receipt Date: 20080611
  Transmission Date: 20081010
  Serious: Yes (Other)
  Sender: FDA-Public Use
  Company Number: US-PFIZER INC-2008049448

PATIENT
  Sex: Female

DRUGS (4)
  1. CORTEF [Suspect]
  2. CYTOMEL [Concomitant]
  3. LEVOTHYROXINE SODIUM [Concomitant]
  4. LYRICA [Concomitant]

REACTIONS (1)
  - FATIGUE [None]
